FAERS Safety Report 6249898-5 (Version None)
Quarter: 2009Q2

REPORT INFORMATION
  Report Type: 
  Country: None (occurrence: None)
  Receive Date: 20090624
  Receipt Date: 20090617
  Transmission Date: 20091009
  Serious: Yes (Hospitalization, Other)
  Sender: FDA-Public Use
  Company Number: ADR5242009

PATIENT
  Age: 11 Year
  Sex: Female

DRUGS (2)
  1. LAMOTRIGINE [Suspect]
     Indication: CONVULSION
     Dosage: 0.7 MG/KG
  2. VALPROATE SODIUM [Concomitant]

REACTIONS (15)
  - BLISTER [None]
  - CONDITION AGGRAVATED [None]
  - DISSEMINATED INTRAVASCULAR COAGULATION [None]
  - DRUG ERUPTION [None]
  - GASTROINTESTINAL HAEMORRHAGE [None]
  - HYPERNATRAEMIA [None]
  - HYPOTENSION [None]
  - INTERNATIONAL NORMALISED RATIO INCREASED [None]
  - NEUTROPHIL TOXIC GRANULATION PRESENT [None]
  - PERIORBITAL OEDEMA [None]
  - RENAL FAILURE [None]
  - RHABDOMYOLYSIS [None]
  - SOMNOLENCE [None]
  - TOXIC SHOCK SYNDROME [None]
  - VAGINAL HAEMORRHAGE [None]
